FAERS Safety Report 18278559 (Version 4)
Quarter: 2021Q1

REPORT INFORMATION
  Report Type: Report from Study
  Country: CH (occurrence: CH)
  Receive Date: 20200917
  Receipt Date: 20210205
  Transmission Date: 20210419
  Serious: Yes (Hospitalization)
  Sender: FDA-Public Use
  Company Number: CH-PFIZER INC-2020356822

PATIENT
  Age: 48 Year
  Sex: Male
  Weight: 87.8 kg

DRUGS (5)
  1. EXCIPIAL [UREA] [Concomitant]
     Dosage: UNK
     Dates: start: 20200828
  2. MALVEOL [Concomitant]
     Dosage: UNK
  3. SUNITINIB MALATE. [Suspect]
     Active Substance: SUNITINIB MALATE
     Indication: GASTROINTESTINAL STROMAL TUMOUR
     Dosage: 50 MG, 1X/DAY
     Route: 048
     Dates: start: 20200730
  4. VALSARTAN. [Concomitant]
     Active Substance: VALSARTAN
     Dosage: UNK
     Dates: end: 20200827
  5. CREON [Concomitant]
     Active Substance: PANCRELIPASE AMYLASE\PANCRELIPASE LIPASE\PANCRELIPASE PROTEASE
     Dosage: UNK
     Dates: start: 201808

REACTIONS (1)
  - Enterococcal bacteraemia [Recovered/Resolved]

NARRATIVE: CASE EVENT DATE: 20200901
